FAERS Safety Report 8388076-0 (Version None)
Quarter: 2012Q2

REPORT INFORMATION
  Report Type: 
  Country: None (occurrence: None)
  Receive Date: 20120525
  Receipt Date: 20120521
  Transmission Date: 20120825
  Serious: Yes (Other)
  Sender: FDA-Public Use
  Company Number: NL-ROXANE LABORATORIES, INC.-2012-RO-01291RO

PATIENT
  Age: 91 Year
  Sex: Male

DRUGS (2)
  1. FUROSEMIDE [Suspect]
  2. HYDROCHLOROTHIAZIDE [Suspect]

REACTIONS (2)
  - GASTROINTESTINAL TRACT MUCOSAL PIGMENTATION [None]
  - SMALL INTESTINAL HAEMORRHAGE [None]
